FAERS Safety Report 25247510 (Version 2)
Quarter: 2025Q3

REPORT INFORMATION
  Report Type: Report from Study
  Country: US (occurrence: US)
  Receive Date: 20250428
  Receipt Date: 20250819
  Transmission Date: 20251021
  Serious: Yes (Other)
  Sender: ABBVIE
  Company Number: US-ABBVIE-6253017

PATIENT
  Age: 24 Year
  Sex: Female
  Weight: 72 kg

DRUGS (11)
  1. RINVOQ [Suspect]
     Active Substance: UPADACITINIB
     Indication: Colitis ulcerative
     Dosage: PILL
     Route: 048
     Dates: start: 20250125, end: 20250517
  2. HYDROXYZINE HYDROCHLORIDE [Concomitant]
     Active Substance: HYDROXYZINE HYDROCHLORIDE
     Indication: Anxiety
     Route: 048
  3. XYZAL [Concomitant]
     Active Substance: LEVOCETIRIZINE DIHYDROCHLORIDE
     Indication: Multiple allergies
     Dosage: PILL
     Route: 048
  4. PREDNISONE [Concomitant]
     Active Substance: PREDNISONE
     Indication: Inflammation
     Dosage: PILL
     Route: 048
  5. TAVNEOS [Concomitant]
     Active Substance: AVACOPAN
     Indication: Granulomatosis with polyangiitis
  6. DIPROSONE [Concomitant]
     Active Substance: BETAMETHASONE DIPROPIONATE
     Indication: Rash
     Route: 061
  7. FERROUS SULFATE [Concomitant]
     Active Substance: FERROUS SULFATE
     Indication: Iron deficiency
     Dosage: 325 PILL
     Route: 048
  8. DIFLUCAN [Concomitant]
     Active Substance: FLUCONAZOLE
     Indication: Candida infection
     Dosage: PILL
     Route: 048
  9. LIDOCAINE [Concomitant]
     Active Substance: LIDOCAINE
     Indication: Proctalgia
  10. SERTRALINE [Concomitant]
     Active Substance: SERTRALINE HYDROCHLORIDE
     Indication: Depression
     Route: 048
  11. PROTOPIC [Concomitant]
     Active Substance: TACROLIMUS
     Indication: Anal fissure

REACTIONS (5)
  - Dyspepsia [Recovering/Resolving]
  - Drug ineffective [Unknown]
  - Product residue present [Unknown]
  - Colitis ulcerative [Unknown]
  - Fistula [Unknown]

NARRATIVE: CASE EVENT DATE: 20250101
